FAERS Safety Report 15539175 (Version 2)
Quarter: 2018Q4

REPORT INFORMATION
  Report Type: Report from Study
  Country: US (occurrence: US)
  Receive Date: 20181022
  Receipt Date: 20181203
  Transmission Date: 20190205
  Serious: Yes (Death)
  Sender: FDA-Public Use
  Company Number: US-ACTELION-A-NJ2017-162568

PATIENT
  Age: 77 Year
  Sex: Male
  Weight: 108.84 kg

DRUGS (2)
  1. ADEMPAS [Concomitant]
     Active Substance: RIOCIGUAT
  2. OPSUMIT [Suspect]
     Active Substance: MACITENTAN
     Indication: PULMONARY ARTERIAL HYPERTENSION
     Dosage: 10 MG, QD
     Route: 048

REACTIONS (6)
  - Pneumonia [Fatal]
  - Unevaluable event [Fatal]
  - Dizziness postural [Unknown]
  - Acute respiratory distress syndrome [Fatal]
  - Respiratory failure [Fatal]
  - Hypertension [Unknown]
